FAERS Safety Report 9121017 (Version 1)
Quarter: 2013Q1

REPORT INFORMATION
  Report Type: Spontaneous
  Country: FR (occurrence: FR)
  Receive Date: 20130226
  Receipt Date: 20130226
  Transmission Date: 20140127
  Serious: Yes (Hospitalization)
  Sender: FDA-Public Use
  Company Number: FR-ROCHE-1194794

PATIENT
  Age: 65 Year
  Sex: Male

DRUGS (11)
  1. CELLCEPT [Suspect]
     Indication: PEMPHIGUS
     Route: 048
  2. MABTHERA [Suspect]
     Indication: PEMPHIGUS
     Route: 042
  3. HYDROCORTISONE [Concomitant]
     Indication: PEMPHIGUS
     Route: 048
     Dates: start: 20111022
  4. SEROPLEX [Concomitant]
     Route: 048
  5. TARKA [Concomitant]
     Route: 048
  6. SIMVASTATINE [Concomitant]
     Route: 048
  7. ACTONEL [Concomitant]
     Route: 048
  8. CACIT VITAMINE D3 [Concomitant]
     Route: 048
  9. CORTANCYL [Concomitant]
     Route: 065
     Dates: start: 200711, end: 200804
  10. METHOTREXATE [Concomitant]
     Route: 065
     Dates: start: 200711, end: 200804
  11. METFORMIN [Concomitant]

REACTIONS (1)
  - Malignant melanoma [Recovered/Resolved]
